FAERS Safety Report 7749900-5 (Version None)
Quarter: 2011Q3

REPORT INFORMATION
  Report Type: 
  Country: None (occurrence: None)
  Receive Date: 20110914
  Receipt Date: 20110909
  Transmission Date: 20111222
  Serious: Yes (Death, Hospitalization)
  Sender: FDA-Public Use
  Company Number: GR-SANOFI-AVENTIS-2011SA059109

PATIENT
  Age: 74 Year
  Sex: Female

DRUGS (2)
  1. ZOLPIDEM [Suspect]
     Route: 048
  2. ZOLPIDEM [Suspect]
     Indication: SUICIDE ATTEMPT
     Route: 048

REACTIONS (3)
  - METABOLIC ACIDOSIS [None]
  - COMA [None]
  - OVERDOSE [None]
